FAERS Safety Report 11099637 (Version 1)
Quarter: 2015Q2

REPORT INFORMATION
  Report Type: Spontaneous
  Country: FR (occurrence: None)
  Receive Date: 20150506
  Receipt Date: 20150506
  Transmission Date: 20150821
  Serious: Yes (Hospitalization)
  Sender: FDA-Public Use
  Company Number: 2845026

PATIENT
  Age: 60 Year
  Sex: Female

DRUGS (3)
  1. PACLITAXEL KABI [Suspect]
     Active Substance: PACLITAXEL
     Indication: OVARIAN CANCER STAGE II
     Dosage: UNKNOWN (UNKNOWN)?INTRAVENOUS (NOT OTHERWISE SPECIFIED)?02/00/2003 - 02/17/2015 (12 YEARS)?
     Route: 042
     Dates: start: 201302, end: 20150217
  2. (DOXORUBICIN) [Concomitant]
     Active Substance: DOXORUBICIN
  3. (CARBOPLATIN) [Suspect]
     Active Substance: CARBOPLATIN
     Indication: OVARIAN CANCER STAGE II
     Dosage: UNKNOWN (UNKNOWN)?INTRAVENOUS (NOT OTHERWISE SPECIFIED)?02/00/2003 - 02/17/2015 (12 YEARS)?
     Route: 042
     Dates: start: 201302, end: 20150217

REACTIONS (2)
  - Myelodysplastic syndrome [None]
  - Acute leukaemia [None]

NARRATIVE: CASE EVENT DATE: 20150224
